FAERS Safety Report 5306360-1 (Version None)
Quarter: 2007Q2

REPORT INFORMATION
  Report Type: 
  Country: None (occurrence: None)
  Receive Date: 20070424
  Receipt Date: 20070413
  Transmission Date: 20071010
  Serious: Yes (Death, Life-Threatening)
  Sender: FDA-Public Use
  Company Number: JP-BAYER-200710289BYL

PATIENT
  Age: 87 Year
  Sex: Female

DRUGS (5)
  1. ADALAT [Suspect]
     Indication: ESSENTIAL HYPERTENSION
     Dosage: TOTAL DAILY DOSE: 20 MG  UNIT DOSE: 20 MG
     Route: 048
     Dates: start: 20060925, end: 20060925
  2. WARFARIN SODIUM [Concomitant]
     Route: 048
     Dates: start: 20060925, end: 20060925
  3. MEVALOTIN [Concomitant]
     Route: 048
     Dates: start: 20060925, end: 20060925
  4. AMLODIN [Concomitant]
     Indication: ESSENTIAL HYPERTENSION
     Dosage: TOTAL DAILY DOSE: 5 MG  UNIT DOSE: 5 MG
     Route: 048
     Dates: start: 20001117, end: 20060925
  5. BLOPRESS [Concomitant]
     Indication: ESSENTIAL HYPERTENSION
     Dosage: TOTAL DAILY DOSE: 8 MG  UNIT DOSE: 8 MG
     Route: 048
     Dates: start: 20010202, end: 20060925

REACTIONS (2)
  - DEATH [None]
  - SHOCK [None]
